FAERS Safety Report 14609731 (Version 1)
Quarter: 2018Q1

REPORT INFORMATION
  Report Type: Not Available
  Country: US (occurrence: US)
  Receive Date: 20180307
  Receipt Date: 20180307
  Transmission Date: 20180509
  Serious: Yes (Other)
  Sender: FDA-Public Use
  Company Number: US-ANIPHARMA-2018-US-003477

PATIENT
  Age: 70 Year
  Sex: Female

DRUGS (3)
  1. VITAMIN B12 [Concomitant]
     Active Substance: CYANOCOBALAMIN
  2. PROPRANOLOL 120 MG EXTENDED RELEASE CAPSULES [Suspect]
     Active Substance: PROPRANOLOL HYDROCHLORIDE
     Dosage: ONE CAPSULE DAILY
     Route: 048
     Dates: start: 2018, end: 2018
  3. MULTIVITAMIN [Concomitant]
     Active Substance: VITAMINS

REACTIONS (6)
  - Tooth fracture [Unknown]
  - Loss of consciousness [Recovered/Resolved]
  - Contusion [Unknown]
  - Blood pressure increased [Unknown]
  - Dizziness [Recovered/Resolved]
  - Tooth injury [Unknown]

NARRATIVE: CASE EVENT DATE: 2018
